FAERS Safety Report 18898019 (Version 11)
Quarter: 2025Q2

REPORT INFORMATION
  Report Type: Report from Study
  Country: US (occurrence: US)
  Receive Date: 20210216
  Receipt Date: 20250512
  Transmission Date: 20250717
  Serious: Yes (Hospitalization, Other)
  Sender: TAKEDA
  Company Number: US-TAKEDA-US202027031

PATIENT
  Sex: Male
  Weight: 91 kg

DRUGS (59)
  1. HUMAN IMMUNOGLOBULIN G [Suspect]
     Active Substance: HUMAN IMMUNOGLOBULIN G
     Indication: Primary immunodeficiency syndrome
  2. GAMMAGARD S/D [Suspect]
     Active Substance: HUMAN IMMUNOGLOBULIN G
     Indication: Immunodeficiency common variable
     Dosage: 40 GRAM, 1/WEEK
     Dates: start: 20180113
  3. GAMMAGARD S/D [Suspect]
     Active Substance: HUMAN IMMUNOGLOBULIN G
  4. DIPHENHYDRAMINE [Concomitant]
     Active Substance: DIPHENHYDRAMINE
  5. HEPARIN [Concomitant]
     Active Substance: HEPARIN SODIUM
  6. LIDOCAINE [Concomitant]
     Active Substance: LIDOCAINE
  7. SODIUM CHLORIDE [Concomitant]
     Active Substance: SODIUM CHLORIDE
  8. EPINEPHRINE [Concomitant]
     Active Substance: EPINEPHRINE
  9. CARDURA [Concomitant]
     Active Substance: DOXAZOSIN MESYLATE
  10. CLONIDINE HYDROCHLORIDE [Concomitant]
     Active Substance: CLONIDINE HYDROCHLORIDE
  11. OXYCODONE HYDROCHLORIDE [Concomitant]
     Active Substance: OXYCODONE HYDROCHLORIDE
  12. PROMETHAZINE HYDROCHLORIDE [Concomitant]
     Active Substance: PROMETHAZINE HYDROCHLORIDE
  13. DOCUSATE CALCIUM [Concomitant]
     Active Substance: DOCUSATE CALCIUM
  14. XOPENEX [Concomitant]
     Active Substance: LEVALBUTEROL HYDROCHLORIDE
  15. SPIRIVA [Concomitant]
     Active Substance: TIOTROPIUM BROMIDE MONOHYDRATE
  16. RELPAX [Concomitant]
     Active Substance: ELETRIPTAN HYDROBROMIDE
  17. HYDROXYCHLOROQUINE SULFATE [Concomitant]
     Active Substance: HYDROXYCHLOROQUINE SULFATE
  18. HYDROCORTISONE [Concomitant]
     Active Substance: HYDROCORTISONE
  19. ZOLPIDEM TARTRATE [Concomitant]
     Active Substance: ZOLPIDEM TARTRATE
  20. CLOTRIMAZOLE [Concomitant]
     Active Substance: CLOTRIMAZOLE
  21. SINGULAIR [Concomitant]
     Active Substance: MONTELUKAST SODIUM
  22. SYNTHROID [Concomitant]
     Active Substance: LEVOTHYROXINE SODIUM
  23. MIRALAX [Concomitant]
     Active Substance: POLYETHYLENE GLYCOL 3350
  24. MAXALT [Concomitant]
     Active Substance: RIZATRIPTAN BENZOATE
  25. NORVASC [Concomitant]
     Active Substance: AMLODIPINE BESYLATE
  26. MAGNESIUM OXIDE [Concomitant]
     Active Substance: MAGNESIUM OXIDE
  27. TESTOSTERONE CYPIONATE [Concomitant]
     Active Substance: TESTOSTERONE CYPIONATE
  28. GABAPENTIN [Concomitant]
     Active Substance: GABAPENTIN
  29. OMEPRAZOLE [Concomitant]
     Active Substance: OMEPRAZOLE
  30. MS CONTIN [Concomitant]
     Active Substance: MORPHINE SULFATE
  31. NALOXONE HCL [Concomitant]
     Active Substance: NALOXONE HYDROCHLORIDE
  32. LIPITOR [Concomitant]
     Active Substance: ATORVASTATIN CALCIUM
  33. DIOVAN [Concomitant]
     Active Substance: VALSARTAN
  34. CARVEDILOL [Concomitant]
     Active Substance: CARVEDILOL
  35. CHLORTHALIDONE [Concomitant]
     Active Substance: CHLORTHALIDONE
  36. OXYBUTYNIN [Concomitant]
     Active Substance: OXYBUTYNIN
  37. POTASSIUM CHLORIDE [Concomitant]
     Active Substance: POTASSIUM CHLORIDE
  38. LIOTHYRONINE SODIUM [Concomitant]
     Active Substance: LIOTHYRONINE SODIUM
  39. PLAVIX [Concomitant]
     Active Substance: CLOPIDOGREL BISULFATE
  40. ATORVASTATIN CALCIUM [Concomitant]
     Active Substance: ATORVASTATIN CALCIUM
  41. LEVOXYL [Concomitant]
     Active Substance: LEVOTHYROXINE SODIUM
  42. BACLOFEN [Concomitant]
     Active Substance: BACLOFEN
  43. LEVALBUTEROL TARTRATE [Concomitant]
     Active Substance: LEVALBUTEROL TARTRATE
  44. LEVOTHYROXINE SODIUM [Concomitant]
     Active Substance: LEVOTHYROXINE SODIUM
  45. ZOFRAN [Concomitant]
     Active Substance: ONDANSETRON HYDROCHLORIDE
  46. ASPIRIN [Concomitant]
     Active Substance: ASPIRIN
  47. FLOMAX [Concomitant]
     Active Substance: TAMSULOSIN HYDROCHLORIDE
  48. LASIX [Concomitant]
     Active Substance: FUROSEMIDE
  49. FLONASE [Concomitant]
     Active Substance: FLUTICASONE PROPIONATE
  50. PEPCID [Concomitant]
     Active Substance: FAMOTIDINE
  51. SENNA-S [Concomitant]
     Active Substance: DOCUSATE SODIUM\SENNOSIDES
  52. MORPHINE [Concomitant]
     Active Substance: MORPHINE
  53. FLUTICASONE PROPIONATE [Concomitant]
     Active Substance: FLUTICASONE PROPIONATE
  54. LOSARTAN POTASSIUM [Concomitant]
     Active Substance: LOSARTAN POTASSIUM
  55. EPIPEN [Concomitant]
     Active Substance: EPINEPHRINE
  56. LEVOTHYROXINE [Concomitant]
     Active Substance: LEVOTHYROXINE
  57. SODIUM [Concomitant]
     Active Substance: SODIUM
  58. MORPHINE SULFATE [Concomitant]
     Active Substance: MORPHINE SULFATE
  59. DIPHENHYDRAMINE HYDROCHLORIDE [Concomitant]
     Active Substance: DIPHENHYDRAMINE HYDROCHLORIDE

REACTIONS (6)
  - Gastrointestinal disorder [Unknown]
  - Appendicitis [Unknown]
  - Bronchitis [Unknown]
  - Product dose omission issue [Unknown]
  - Arthralgia [Unknown]
  - Back pain [Unknown]
